FAERS Safety Report 18980478 (Version 7)
Quarter: 2025Q1

REPORT INFORMATION
  Report Type: Spontaneous
  Country: US (occurrence: US)
  Receive Date: 20210308
  Receipt Date: 20250127
  Transmission Date: 20250409
  Serious: Yes (Hospitalization, Other)
  Sender: PFIZER
  Company Number: US-PFIZER INC-2021235054

PATIENT
  Age: 74 Year
  Sex: Female

DRUGS (1)
  1. XELJANZ XR [Suspect]
     Active Substance: TOFACITINIB CITRATE

REACTIONS (11)
  - Spinal fracture [Unknown]
  - Somnambulism [Recovering/Resolving]
  - Fall [Recovering/Resolving]
  - Skull fracture [Recovering/Resolving]
  - Skin laceration [Recovering/Resolving]
  - Herpes zoster [Unknown]
  - Pain [Not Recovered/Not Resolved]
  - Hypertension [Unknown]
  - Arthritis [Unknown]
  - Impaired driving ability [Unknown]
  - Haemorrhage [Recovering/Resolving]

NARRATIVE: CASE EVENT DATE: 20241030
